FAERS Safety Report 7529098-9 (Version None)
Quarter: 2011Q2

REPORT INFORMATION
  Report Type: 
  Country: None (occurrence: None)
  Receive Date: 20110607
  Receipt Date: 20041220
  Transmission Date: 20111010
  Serious: Yes (Hospitalization, Other)
  Sender: FDA-Public Use
  Company Number: PHHO2004CA17792

PATIENT
  Sex: Male

DRUGS (2)
  1. CLOZARIL [Suspect]
     Indication: SCHIZOPHRENIA, PARANOID TYPE
     Dosage: 625 MG, QD
     Route: 048
     Dates: start: 20041007
  2. WELLBUTRIN [Concomitant]

REACTIONS (3)
  - RESTLESSNESS [None]
  - MOVEMENT DISORDER [None]
  - DELIRIUM [None]
